FAERS Safety Report 21744079 (Version 1)
Quarter: 2022Q4

REPORT INFORMATION
  Report Type: Spontaneous
  Country: FR (occurrence: FR)
  Receive Date: 20221218
  Receipt Date: 20221218
  Transmission Date: 20230113
  Serious: Yes (Other)
  Sender: FDA-Public Use
  Company Number: FR-JNJFOC-20221157545

PATIENT
  Age: 68 Year
  Sex: Male

DRUGS (4)
  1. LENALIDOMIDE [Suspect]
     Active Substance: LENALIDOMIDE
     Indication: Plasma cell myeloma
     Dosage: 10 MG/DOSE, 7 DOSES/WEEK
     Route: 065
     Dates: end: 20210322
  2. MELPHALAN [Suspect]
     Active Substance: MELPHALAN
     Indication: Plasma cell myeloma
     Dosage: 200 MG/M2/DOSE, 1 DOSE/WEEK
     Route: 065
     Dates: end: 20210322
  3. DEXAMETHASONE [Suspect]
     Active Substance: DEXAMETHASONE
     Indication: Plasma cell myeloma
     Dosage: 40 MG/DOSE, DAY 1 DAY 4 DAY 8 AND DAY 11; FIRST LINE TREATMENT
     Route: 065
     Dates: end: 20210322
  4. VELCADE [Suspect]
     Active Substance: BORTEZOMIB
     Indication: Plasma cell myeloma
     Dosage: 2.4 MG/DOSE DAY 4, DAY 8 AND DAY 11; FISRT LINE TREATMENT
     Route: 065
     Dates: end: 20210322

REACTIONS (3)
  - Neutropenia [Unknown]
  - Plasma cell myeloma [Unknown]
  - Intentional product use issue [Unknown]
